FAERS Safety Report 4741653-8 (Version None)
Quarter: 2005Q3

REPORT INFORMATION
  Report Type: 
  Country: None (occurrence: None)
  Receive Date: 20050808
  Receipt Date: 20050801
  Transmission Date: 20060218
  Serious: Yes (Disabling)
  Sender: FDA-Public Use
  Company Number: 200512402GDS

PATIENT
  Age: 83 Year
  Sex: Male

DRUGS (1)
  1. ASPIRIN [Suspect]
     Indication: CEREBROVASCULAR DISORDER
     Dosage: 100 MG, TOTAL DAILY, ORAL
     Route: 048
     Dates: start: 20040101

REACTIONS (3)
  - BLINDNESS [None]
  - HAEMORRHAGIC STROKE [None]
  - HYPOSTHENURIA [None]
